FAERS Safety Report 16076161 (Version 1)
Quarter: 2019Q1

REPORT INFORMATION
  Report Type: Spontaneous
  Country: US (occurrence: US)
  Receive Date: 20190315
  Receipt Date: 20190315
  Transmission Date: 20190418
  Serious: No
  Sender: FDA-Public Use
  Company Number: US-TEVA-2019-US-1009633

PATIENT
  Sex: Male
  Weight: 81.65 kg

DRUGS (1)
  1. VENLAFAXINE ER TEVA [Suspect]
     Active Substance: VENLAFAXINE HYDROCHLORIDE
     Indication: ANXIETY
     Dosage: 150 MILLIGRAM DAILY;
     Route: 048
     Dates: start: 2017, end: 20171112

REACTIONS (5)
  - Drug ineffective [Unknown]
  - Insomnia [Recovering/Resolving]
  - Panic attack [Recovered/Resolved]
  - Decreased appetite [Recovering/Resolving]
  - Product substitution issue [Unknown]

NARRATIVE: CASE EVENT DATE: 2017
